FAERS Safety Report 25058906 (Version 3)
Quarter: 2025Q2

REPORT INFORMATION
  Report Type: Spontaneous
  Country: None (occurrence: CA)
  Receive Date: 20250310
  Receipt Date: 20250408
  Transmission Date: 20250716
  Serious: No
  Sender: MYLAN
  Company Number: CA-MYLANLABS-2025M1015517

PATIENT
  Sex: Female

DRUGS (4)
  1. EPIPEN [Suspect]
     Active Substance: EPINEPHRINE
     Indication: Product used for unknown indication
  2. EPIPEN [Suspect]
     Active Substance: EPINEPHRINE
     Route: 030
  3. EPIPEN [Suspect]
     Active Substance: EPINEPHRINE
     Route: 030
  4. EPIPEN [Suspect]
     Active Substance: EPINEPHRINE

REACTIONS (9)
  - Injection site paraesthesia [Unknown]
  - Injection site swelling [Unknown]
  - Injection site haemorrhage [Unknown]
  - Injection site discolouration [Recovered/Resolved]
  - Injection site pain [Unknown]
  - Injury associated with device [Unknown]
  - Wrong technique in product usage process [Unknown]
  - Accidental exposure to product [Unknown]
  - Device failure [Unknown]

NARRATIVE: CASE EVENT DATE: 20250214
